FAERS Safety Report 10280482 (Version 1)
Quarter: 2014Q3

REPORT INFORMATION
  Report Type: Spontaneous
  Country: US (occurrence: US)
  Receive Date: 20140707
  Receipt Date: 20140707
  Transmission Date: 20150326
  Serious: No
  Sender: FDA-Public Use
  Company Number: US-PFIZER INC-2014184384

PATIENT
  Age: 61 Year
  Sex: Male
  Weight: 74.38 kg

DRUGS (2)
  1. LYRICA [Suspect]
     Active Substance: PREGABALIN
     Indication: SPINAL CORD INJURY
     Dosage: 300 MG, 1X/DAY
     Route: 048
     Dates: start: 201310
  2. FINASTERIDE. [Concomitant]
     Active Substance: FINASTERIDE
     Indication: ALOPECIA
     Dosage: UNK, ALTERNATE DAY (ONCE EVERY OTHER DAY)

REACTIONS (2)
  - Disturbance in attention [Unknown]
  - Somnolence [Unknown]
